FAERS Safety Report 8425926-3 (Version None)
Quarter: 2012Q2

REPORT INFORMATION
  Report Type: 
  Country: None (occurrence: None)
  Receive Date: 20120611
  Receipt Date: 20120531
  Transmission Date: 20120825
  Serious: Yes (Hospitalization, Other)
  Sender: FDA-Public Use
  Company Number: AU-ABBOTT-05P-008-0314605-00

PATIENT
  Age: 51 Year
  Sex: Female

DRUGS (2)
  1. SIBUTRAMINE HYDROCHLORIDE MONOHYDRATE [Suspect]
     Dates: end: 20040101
  2. SIBUTRAMINE HYDROCHLORIDE MONOHYDRATE [Suspect]
     Indication: OBESITY
     Dates: start: 20040801

REACTIONS (8)
  - CARDIAC ARREST [None]
  - ABNORMAL BEHAVIOUR [None]
  - HYPOXIC-ISCHAEMIC ENCEPHALOPATHY [None]
  - MOVEMENT DISORDER [None]
  - ELECTROCARDIOGRAM QT PROLONGED [None]
  - ARRHYTHMIA [None]
  - COMA [None]
  - VENTRICULAR FIBRILLATION [None]
